FAERS Safety Report 9431360 (Version 1)
Quarter: 2013Q3

REPORT INFORMATION
  Report Type: Spontaneous
  Country: FR (occurrence: FR)
  Receive Date: 20130730
  Receipt Date: 20130730
  Transmission Date: 20140515
  Serious: Yes (Death, Hospitalization)
  Sender: FDA-Public Use
  Company Number: FR-BAXTER-2013BAX029359

PATIENT
  Age: 33 Year
  Sex: Male

DRUGS (22)
  1. HOLOXAN 2000 MG, POUDRE POUR USAGE PARENT?RAL [Suspect]
     Indication: B-CELL LYMPHOMA STAGE II
     Route: 042
     Dates: start: 20130329
  2. HOLOXAN 2000 MG, POUDRE POUR USAGE PARENT?RAL [Suspect]
     Route: 042
     Dates: start: 20130430
  3. HOLOXAN 2000 MG, POUDRE POUR USAGE PARENT?RAL [Suspect]
     Route: 042
     Dates: start: 20130610
  4. ETOPOPHOS [Suspect]
     Indication: B-CELL LYMPHOMA STAGE II
     Route: 042
     Dates: start: 20130329
  5. ETOPOPHOS [Suspect]
     Route: 042
     Dates: start: 20130430
  6. ETOPOPHOS [Suspect]
     Route: 042
     Dates: start: 20130610
  7. MABTHERA [Suspect]
     Indication: B-CELL LYMPHOMA STAGE II
     Route: 042
     Dates: start: 20130329
  8. MABTHERA [Suspect]
     Route: 042
     Dates: start: 20130430
  9. MABTHERA [Suspect]
     Route: 042
     Dates: start: 20130610
  10. ONDANSETRON [Concomitant]
     Indication: PRODUCT USED FOR UNKNOWN INDICATION
     Route: 065
     Dates: start: 20130329
  11. ONDANSETRON [Concomitant]
     Route: 065
     Dates: start: 20130430
  12. ONDANSETRON [Concomitant]
     Route: 065
     Dates: start: 20130610
  13. MESNA [Concomitant]
     Indication: PRODUCT USED FOR UNKNOWN INDICATION
     Route: 042
     Dates: start: 20130329
  14. MESNA [Concomitant]
     Route: 048
     Dates: start: 20130329
  15. MESNA [Concomitant]
     Route: 042
     Dates: start: 20130430
  16. MESNA [Concomitant]
     Route: 048
     Dates: start: 20130430
  17. MESNA [Concomitant]
     Route: 042
     Dates: start: 20130610
  18. MESNA [Concomitant]
     Route: 048
     Dates: start: 20130610
  19. BACTRIM FORTE [Concomitant]
     Indication: PRODUCT USED FOR UNKNOWN INDICATION
     Route: 065
     Dates: start: 201301
  20. ZELITREX [Concomitant]
     Indication: PRODUCT USED FOR UNKNOWN INDICATION
     Dosage: 500 UNITS NOT REPORTED
     Route: 065
     Dates: start: 201301
  21. SPECIAFOLDINE [Concomitant]
     Indication: PRODUCT USED FOR UNKNOWN INDICATION
     Route: 065
     Dates: start: 201301
  22. INNOHEP [Concomitant]
     Indication: PRODUCT USED FOR UNKNOWN INDICATION
     Route: 065
     Dates: start: 201301

REACTIONS (2)
  - Septic shock [Fatal]
  - Pancytopenia [Fatal]
